FAERS Safety Report 8870001 (Version 1)
Quarter: 2012Q4

REPORT INFORMATION
  Report Type: 
  Country: US (occurrence: US)
  Receive Date: 20121023
  Receipt Date: 20121023
  Transmission Date: 20130627
  Serious: No
  Sender: FDA-Public Use
  Company Number: US-AMGEN-USASP2012026857

PATIENT
  Age: 76 Year
  Sex: Female

DRUGS (2)
  1. ENBREL [Suspect]
     Indication: RHEUMATOID ARTHRITIS
     Dosage: 50 mg, qwk
     Dates: start: 20110615
  2. PLAQUENIL                          /00072602/ [Concomitant]
     Dosage: 2 mg, UNK
     Dates: start: 2000

REACTIONS (6)
  - Oral mucosal blistering [Not Recovered/Not Resolved]
  - Oral mucosal erythema [Not Recovered/Not Resolved]
  - Swollen tongue [Not Recovered/Not Resolved]
  - Hypertension [Not Recovered/Not Resolved]
  - Nodule [Not Recovered/Not Resolved]
  - Rash [Not Recovered/Not Resolved]
